FAERS Safety Report 16255696 (Version 1)
Quarter: 2019Q2

REPORT INFORMATION
  Report Type: Spontaneous
  Country: PT (occurrence: PT)
  Receive Date: 20190430
  Receipt Date: 20190430
  Transmission Date: 20190711
  Serious: Yes (Other)
  Sender: FDA-Public Use
  Company Number: PT-TEVA-2019-PT-1043169

PATIENT
  Age: 45 Year
  Sex: Female

DRUGS (1)
  1. EMTRICITABINA + TENOFOVIR TEVA [Suspect]
     Active Substance: EMTRICITABINE\TENOFOVIR
     Indication: HIV INFECTION
     Route: 048

REACTIONS (5)
  - Viral load increased [Not Recovered/Not Resolved]
  - Product substitution issue [Unknown]
  - Diarrhoea [Recovering/Resolving]
  - Dizziness [Recovering/Resolving]
  - Nausea [Not Recovered/Not Resolved]
